FAERS Safety Report 6767690-X (Version None)
Quarter: 2010Q2

REPORT INFORMATION
  Report Type: 
  Country: None (occurrence: None)
  Receive Date: 20100614
  Receipt Date: 20100604
  Transmission Date: 20101027
  Serious: Yes (Death, Hospitalization, Other)
  Sender: FDA-Public Use
  Company Number: JP-ROCHE-648864

PATIENT
  Sex: Male
  Weight: 61 kg

DRUGS (76)
  1. AVASTIN [Suspect]
     Indication: COLON CANCER METASTATIC
     Route: 041
     Dates: start: 20070710, end: 20070710
  2. AVASTIN [Suspect]
     Route: 041
     Dates: start: 20070724, end: 20070724
  3. AVASTIN [Suspect]
     Route: 041
     Dates: start: 20070807, end: 20070807
  4. AVASTIN [Suspect]
     Route: 041
     Dates: start: 20070821, end: 20070821
  5. AVASTIN [Suspect]
     Route: 041
     Dates: start: 20070904, end: 20070904
  6. AVASTIN [Suspect]
     Route: 041
     Dates: start: 20070918, end: 20070918
  7. AVASTIN [Suspect]
     Route: 041
     Dates: start: 20071016, end: 20071016
  8. AVASTIN [Suspect]
     Route: 041
     Dates: start: 20071030, end: 20071030
  9. AVASTIN [Suspect]
     Route: 041
     Dates: start: 20071113, end: 20071113
  10. AVASTIN [Suspect]
     Route: 041
     Dates: start: 20071211, end: 20071211
  11. AVASTIN [Suspect]
     Route: 041
     Dates: start: 20071225, end: 20071225
  12. AVASTIN [Suspect]
     Route: 041
     Dates: start: 20080115, end: 20080115
  13. AVASTIN [Suspect]
     Dosage: START DATE: 2008
     Route: 041
     Dates: end: 20080212
  14. AVASTIN [Suspect]
     Route: 041
     Dates: start: 20090604, end: 20090728
  15. ISOVORIN [Suspect]
     Indication: COLON CANCER METASTATIC
     Route: 041
     Dates: start: 20070710, end: 20070710
  16. ISOVORIN [Suspect]
     Route: 041
     Dates: start: 20070724, end: 20070724
  17. ISOVORIN [Suspect]
     Route: 041
     Dates: start: 20070807, end: 20070807
  18. ISOVORIN [Suspect]
     Route: 041
     Dates: start: 20070821, end: 20070821
  19. ISOVORIN [Suspect]
     Route: 041
     Dates: start: 20070904, end: 20070904
  20. ISOVORIN [Suspect]
     Route: 041
     Dates: start: 20070918, end: 20070918
  21. ISOVORIN [Suspect]
     Route: 041
     Dates: start: 20071016, end: 20071016
  22. ISOVORIN [Suspect]
     Route: 041
     Dates: start: 20071030, end: 20071030
  23. ISOVORIN [Suspect]
     Route: 041
     Dates: start: 20071113, end: 20071113
  24. ISOVORIN [Suspect]
     Route: 041
     Dates: start: 20071211, end: 20071211
  25. ISOVORIN [Suspect]
     Route: 041
     Dates: start: 20071225, end: 20071225
  26. ISOVORIN [Suspect]
     Route: 041
     Dates: start: 20080115, end: 20080115
  27. ISOVORIN [Suspect]
     Route: 041
     Dates: end: 20080212
  28. ISOVORIN [Suspect]
     Route: 041
     Dates: start: 20090604, end: 20091217
  29. DICLOFENAC [Suspect]
     Indication: NAUSEA
     Dosage: DRUG: VONFENAC, FORM: RECTAL SUPPOSITORY
     Route: 054
     Dates: start: 20090604, end: 20090609
  30. DICLOFENAC [Suspect]
     Route: 054
     Dates: start: 20090723, end: 20090728
  31. FLUOROURACIL [Suspect]
     Indication: COLON CANCER METASTATIC
     Route: 040
     Dates: start: 20070710, end: 20070710
  32. FLUOROURACIL [Suspect]
     Route: 040
     Dates: start: 20070710, end: 20070712
  33. FLUOROURACIL [Suspect]
     Route: 040
     Dates: start: 20070724, end: 20070724
  34. FLUOROURACIL [Suspect]
     Route: 040
     Dates: start: 20070724, end: 20070726
  35. FLUOROURACIL [Suspect]
     Route: 040
     Dates: start: 20070807, end: 20070809
  36. FLUOROURACIL [Suspect]
     Route: 040
     Dates: start: 20070821, end: 20070823
  37. FLUOROURACIL [Suspect]
     Route: 040
     Dates: start: 20070904, end: 20070906
  38. FLUOROURACIL [Suspect]
     Route: 040
     Dates: start: 20070918, end: 20070920
  39. FLUOROURACIL [Suspect]
     Route: 040
     Dates: start: 20071016, end: 20071018
  40. FLUOROURACIL [Suspect]
     Route: 040
     Dates: start: 20071030, end: 20071101
  41. FLUOROURACIL [Suspect]
     Route: 040
     Dates: start: 20071113, end: 20071115
  42. FLUOROURACIL [Suspect]
     Route: 040
     Dates: start: 20071211, end: 20071213
  43. FLUOROURACIL [Suspect]
     Route: 040
     Dates: start: 20071225, end: 20071227
  44. FLUOROURACIL [Suspect]
     Route: 040
     Dates: start: 20080115, end: 20080117
  45. FLUOROURACIL [Suspect]
     Route: 040
     Dates: end: 20080213
  46. FLUOROURACIL [Suspect]
     Route: 040
     Dates: start: 20090604, end: 20090709
  47. FLUOROURACIL [Suspect]
     Route: 040
     Dates: start: 20090604, end: 20091217
  48. CAMPTOSAR [Suspect]
     Indication: COLON CANCER METASTATIC
     Route: 041
     Dates: start: 20070710, end: 20070710
  49. CAMPTOSAR [Suspect]
     Route: 041
     Dates: start: 20070724, end: 20070724
  50. CAMPTOSAR [Suspect]
     Route: 041
     Dates: start: 20070807, end: 20070807
  51. CAMPTOSAR [Suspect]
     Route: 041
     Dates: start: 20070821, end: 20070821
  52. CAMPTOSAR [Suspect]
     Route: 041
     Dates: start: 20070904, end: 20070904
  53. CAMPTOSAR [Suspect]
     Route: 041
     Dates: start: 20070918, end: 20070918
  54. CAMPTOSAR [Suspect]
     Route: 041
     Dates: start: 20071016, end: 20071016
  55. CAMPTOSAR [Suspect]
     Route: 041
     Dates: start: 20071030, end: 20071030
  56. CAMPTOSAR [Suspect]
     Route: 041
     Dates: start: 20071113, end: 20071113
  57. CAMPTOSAR [Suspect]
     Route: 041
     Dates: start: 20071211, end: 20071211
  58. CAMPTOSAR [Suspect]
     Route: 041
     Dates: start: 20071225, end: 20071225
  59. CAMPTOSAR [Suspect]
     Route: 041
     Dates: start: 20080115, end: 20080115
  60. CAMPTOSAR [Suspect]
     Route: 041
     Dates: end: 20080212
  61. CAMPTOSAR [Suspect]
     Route: 041
     Dates: start: 20081111, end: 20090226
  62. URSO 250 [Concomitant]
     Indication: NAUSEA
     Route: 048
     Dates: start: 20090604, end: 20090709
  63. DECADRON [Concomitant]
     Route: 048
     Dates: start: 20070711, end: 20080130
  64. DECADRON [Concomitant]
     Route: 048
     Dates: start: 20090604, end: 20090728
  65. DECADRON [Concomitant]
     Route: 042
     Dates: start: 20090604, end: 20090709
  66. KYTRIL [Concomitant]
     Route: 042
     Dates: start: 20090604, end: 20090709
  67. ERBITUX [Concomitant]
     Indication: COLON CANCER METASTATIC
     Route: 041
     Dates: start: 20081111, end: 20090226
  68. ELPLAT [Concomitant]
     Route: 041
     Dates: start: 20090604, end: 20090709
  69. DICLOFENAC SODIUM [Concomitant]
     Dosage: DRUG: VONFENAC (DICLOFENAC SODIUM). NOTE: TAKEN AS NEEDED. FORM: RECTAL SUPPOSITORY, ROUTE: RECTAL
     Dates: start: 20060604, end: 20090709
  70. DICLOFENAC SODIUM [Concomitant]
     Dosage: DRUG: VONFENAC (DICLOFENAC SODIUM). NOTE: TAKEN AS NEEDED. FORM: RECTAL SUPPOSITORY, ROUTE: RECTAL
     Dates: start: 20090723, end: 20090728
  71. AMLODIN [Concomitant]
     Dosage: DRUG: AMLODIPINE BESILATE. NOTE: TAKEN AS NEEDED.
     Route: 048
     Dates: start: 20070111, end: 20080130
  72. INDISETRON HYDROCHLORIDE [Concomitant]
     Dosage: DRUG: SINSERON. NOTE: TAKEN AS NEEDED.
     Route: 048
     Dates: start: 20070710, end: 20080130
  73. RINDERON [Concomitant]
     Dosage: DRUG NAME: RINDERON (BETAMETHASONE SODIUM PHOSPHATE).
     Route: 042
     Dates: start: 20070710, end: 20080130
  74. SEROTONE [Concomitant]
     Dosage: DRUG NAME: SEROTONE (AZASETRON HYDROCHLORIDE).
     Route: 042
     Dates: start: 20070710, end: 20080130
  75. IRINOTECAN HYDROCHLORIDE [Concomitant]
     Dates: start: 20070710, end: 20080212
  76. VENA [Concomitant]
     Indication: NAUSEA
     Dosage: DRUG NAME: DIPHENHYDRAMINE HYDROCHLORIDE.
     Route: 048
     Dates: start: 20090604, end: 20090609

REACTIONS (6)
  - BLOOD BILIRUBIN INCREASED [None]
  - COLON CANCER METASTATIC [None]
  - DIARRHOEA [None]
  - GASTROINTESTINAL PERFORATION [None]
  - PELVIC ABSCESS [None]
  - SMALL INTESTINAL PERFORATION [None]
